FAERS Safety Report 5835799-0 (Version None)
Quarter: 2008Q3

REPORT INFORMATION
  Report Type: 
  Country: None (occurrence: None)
  Receive Date: 20080806
  Receipt Date: 20080731
  Transmission Date: 20090109
  Serious: Yes (Hospitalization, Other)
  Sender: FDA-Public Use
  Company Number: DE-BOEHRINGER INGELHEIM GMBH, GERMANY-2008-BP-12008RO

PATIENT
  Age: 59 Year
  Sex: Male
  Weight: 99 kg

DRUGS (6)
  1. LITHIUM CARBONATE [Suspect]
     Indication: MOOD ALTERED
  2. VENLAFAXINE HCL [Suspect]
     Indication: MAJOR DEPRESSION
  3. MIRTAZAPINE [Suspect]
     Indication: MAJOR DEPRESSION
  4. VALPROIC ACID [Suspect]
     Indication: MOOD ALTERED
  5. RISPERIDONE [Concomitant]
     Indication: DELIRIUM
  6. QUETIAPINE FUMARATE [Concomitant]
     Indication: MOOD ALTERED

REACTIONS (9)
  - AGITATION [None]
  - DELIRIUM [None]
  - DISORIENTATION [None]
  - DYSPNOEA [None]
  - INITIAL INSOMNIA [None]
  - MERYCISM [None]
  - MOOD ALTERED [None]
  - PHARYNGEAL ABSCESS [None]
  - SLEEP APNOEA SYNDROME [None]
